FAERS Safety Report 8075938-7 (Version None)
Quarter: 2012Q1

REPORT INFORMATION
  Report Type: 
  Country: None (occurrence: None)
  Receive Date: 20120127
  Receipt Date: 20120124
  Transmission Date: 20120608
  Serious: Yes (Death, Hospitalization)
  Sender: FDA-Public Use
  Company Number: US-PFIZER INC-2012020274

PATIENT
  Sex: Male

DRUGS (2)
  1. SUTENT [Suspect]
     Indication: RENAL CANCER
     Dosage: 50 MG, UNK
     Dates: start: 20111209, end: 20120107
  2. SUTENT [Suspect]
     Indication: MALIGNANT URINARY TRACT NEOPLASM

REACTIONS (4)
  - DISEASE PROGRESSION [None]
  - RENAL CANCER [None]
  - MALIGNANT URINARY TRACT NEOPLASM [None]
  - HIP FRACTURE [None]
